FAERS Safety Report 20162731 (Version 1)
Quarter: 2021Q4

REPORT INFORMATION
  Report Type: Spontaneous
  Country: FR (occurrence: FR)
  Receive Date: 20211208
  Receipt Date: 20211208
  Transmission Date: 20220303
  Serious: Yes (Hospitalization, Other)
  Sender: FDA-Public Use
  Company Number: None

PATIENT
  Age: 89 Year
  Sex: Female
  Weight: 65 kg

DRUGS (15)
  1. PIPERACILLIN [Suspect]
     Active Substance: PIPERACILLIN
     Indication: Postoperative wound infection
     Dosage: 4 G, TID (EVERY 8 HOURS)
     Route: 041
     Dates: start: 20211002, end: 20211013
  2. DULOXETINE HYDROCHLORIDE [Suspect]
     Active Substance: DULOXETINE HYDROCHLORIDE
     Indication: Neuralgia
     Dosage: 30 MG, QD
     Route: 048
     Dates: start: 20211015, end: 20211020
  3. CIPROFLOXACIN HYDROCHLORIDE [Suspect]
     Active Substance: CIPROFLOXACIN HYDROCHLORIDE
     Indication: Postoperative wound infection
     Dosage: 500 MG, BID
     Route: 048
     Dates: start: 20211002, end: 20211014
  4. AMLODIPINE BESYLATE [Suspect]
     Active Substance: AMLODIPINE BESYLATE
     Indication: Hypertension
     Dosage: 10 MG, QD
     Route: 048
     Dates: start: 20211010
  5. RIFAMPIN [Suspect]
     Active Substance: RIFAMPIN
     Indication: Postoperative wound infection
     Dosage: 900 MG, QD (600MG IN THE MORNING, 300MG IN THE EVENING)
     Route: 048
     Dates: start: 20211002, end: 20211013
  6. LAMALINE (ACETAMINOPHEN\CAFFEINE\OPIUM) [Concomitant]
     Active Substance: ACETAMINOPHEN\CAFFEINE\OPIUM
  7. MOTILIUM [Concomitant]
     Active Substance: DOMPERIDONE
  8. IRBESARTAN [Concomitant]
     Active Substance: IRBESARTAN
  9. PIPERACILLIN SODIUM\TAZOBACTAM SODIUM [Concomitant]
     Active Substance: PIPERACILLIN SODIUM\TAZOBACTAM SODIUM
  10. DIAZEPAM [Concomitant]
     Active Substance: DIAZEPAM
  11. LOVENOX [Concomitant]
     Active Substance: ENOXAPARIN SODIUM
  12. LANSOPRAZOLE [Concomitant]
     Active Substance: LANSOPRAZOLE
  13. OXAZEPAM [Concomitant]
     Active Substance: OXAZEPAM
  14. LINEZOLID [Concomitant]
     Active Substance: LINEZOLID
  15. OXYCODONE HYDROCHLORIDE [Concomitant]
     Active Substance: OXYCODONE HYDROCHLORIDE

REACTIONS (2)
  - Hepatic cytolysis [Recovering/Resolving]
  - Inappropriate antidiuretic hormone secretion [Recovered/Resolved]

NARRATIVE: CASE EVENT DATE: 20211019
